FAERS Safety Report 6886074-7 (Version None)
Quarter: 2010Q3

REPORT INFORMATION
  Report Type: 
  Country: None (occurrence: None)
  Receive Date: 20100729
  Receipt Date: 20080313
  Transmission Date: 20110219
  Serious: No
  Sender: FDA-Public Use
  Company Number: US-PFIZER INC-2008024455

PATIENT
  Sex: Male
  Weight: 68.181 kg

DRUGS (7)
  1. CELEBREX [Suspect]
     Indication: MUSCLE SPASMS
     Dates: start: 20080312, end: 20080313
  2. TENORMIN [Concomitant]
     Indication: HYPERTENSION
  3. LISINOPRIL [Concomitant]
     Indication: HYPERTENSION
  4. PLAVIX [Concomitant]
  5. CRESTOR [Concomitant]
  6. TRICOR [Concomitant]
     Indication: BLOOD TRIGLYCERIDES INCREASED
  7. ACETYLSALICYLIC ACID SRT [Concomitant]

REACTIONS (2)
  - BLOOD PRESSURE INCREASED [None]
  - HEART RATE INCREASED [None]
